FAERS Safety Report 25416480 (Version 1)
Quarter: 2025Q2

REPORT INFORMATION
  Report Type: Spontaneous
  Country: US (occurrence: US)
  Receive Date: 20250610
  Receipt Date: 20250610
  Transmission Date: 20250717
  Serious: No
  Sender: TEVA
  Company Number: US-TEVA-VS-3338747

PATIENT
  Age: 71 Year
  Sex: Male

DRUGS (2)
  1. AUSTEDO [Suspect]
     Active Substance: DEUTETRABENAZINE
     Indication: Tardive dyskinesia
     Route: 065
     Dates: start: 2023
  2. AUSTEDO XR [Suspect]
     Active Substance: DEUTETRABENAZINE
     Indication: Tardive dyskinesia
     Dosage: DAILY DOSE: 12 MG
     Route: 048
     Dates: start: 2025

REACTIONS (2)
  - Drug ineffective [Unknown]
  - Bruxism [Unknown]

NARRATIVE: CASE EVENT DATE: 20250101
